FAERS Safety Report 6395815-7 (Version None)
Quarter: 2009Q4

REPORT INFORMATION
  Report Type: 
  Country: None (occurrence: None)
  Receive Date: 20091009
  Receipt Date: 20090717
  Transmission Date: 20100525
  Serious: No
  Sender: FDA-Public Use
  Company Number: A0792055A

PATIENT
  Age: 58 Year
  Sex: Female
  Weight: 98.2 kg

DRUGS (2)
  1. TYKERB [Suspect]
     Indication: BREAST CANCER
     Dosage: 2.5TAB PER DAY
     Route: 048
     Dates: start: 20090501
  2. UNKNOWN [Concomitant]

REACTIONS (2)
  - DIARRHOEA [None]
  - NAUSEA [None]
